FAERS Safety Report 12594222 (Version 1)
Quarter: 2016Q3

REPORT INFORMATION
  Report Type: Spontaneous
  Country: MX (occurrence: MX)
  Receive Date: 20160726
  Receipt Date: 20160726
  Transmission Date: 20161109
  Serious: Yes (Hospitalization)
  Sender: FDA-Public Use
  Company Number: MX-PFIZER INC-2016360290

PATIENT
  Sex: Female

DRUGS (1)
  1. LYRICA [Suspect]
     Active Substance: PREGABALIN
     Dosage: 25 MG, UNK

REACTIONS (7)
  - Loss of consciousness [Unknown]
  - Mydriasis [Unknown]
  - Vision blurred [Unknown]
  - Diplopia [Unknown]
  - Somnolence [Unknown]
  - Myocardial infarction [Unknown]
  - Speech disorder [Unknown]

NARRATIVE: CASE EVENT DATE: 20160724
